FAERS Safety Report 5591417-0 (Version None)
Quarter: 2008Q1

REPORT INFORMATION
  Report Type: 
  Country: None (occurrence: None)
  Receive Date: 20080111
  Receipt Date: 20080111
  Transmission Date: 20080703
  Serious: Yes (Other)
  Sender: FDA-Public Use
  Company Number: None

PATIENT
  Age: 62 Year
  Sex: Male
  Weight: 83 kg

DRUGS (12)
  1. CCI-779 (TEMSIROLIMUS) [Suspect]
     Indication: MULTIPLE MYELOMA
     Dosage: 25MG/M2 WEEKLY
     Dates: start: 20071207, end: 20071228
  2. VELCADE [Suspect]
     Indication: MULTIPLE MYELOMA
     Dosage: 1.3MG/M2 WEEKLY FOR 4
     Dates: start: 20071207, end: 20071228
  3. BACTRIM [Concomitant]
  4. FOLIC ACID [Concomitant]
  5. LAMIVUDINE [Concomitant]
  6. MAGNESIUM OXIDE [Concomitant]
  7. VITAMIN CAP [Concomitant]
  8. NEUTROTIN [Concomitant]
  9. OXYCODONE [Concomitant]
  10. PRILOSEC [Concomitant]
  11. VALTREX [Concomitant]
  12. VITAMIN B6 [Concomitant]

REACTIONS (1)
  - THROMBOCYTOPENIA [None]
